FAERS Safety Report 16115655 (Version 1)
Quarter: 2019Q1

REPORT INFORMATION
  Report Type: Spontaneous
  Country: FR (occurrence: FR)
  Receive Date: 20190326
  Receipt Date: 20190326
  Transmission Date: 20190418
  Serious: Yes (Other)
  Sender: FDA-Public Use
  Company Number: FR-ROCHE-2288499

PATIENT
  Age: 13 Year
  Sex: Male
  Weight: 44 kg

DRUGS (2)
  1. AVASTIN [Suspect]
     Active Substance: BEVACIZUMAB
     Indication: OPTIC GLIOMA
     Dosage: 25 MG/ML
     Route: 042
     Dates: start: 20180228
  2. IRINOTECAN HOSPIRA [Suspect]
     Active Substance: IRINOTECAN
     Indication: OPTIC GLIOMA
     Route: 042
     Dates: start: 20180228

REACTIONS (1)
  - Glomerulonephropathy [Recovering/Resolving]

NARRATIVE: CASE EVENT DATE: 20181127
